FAERS Safety Report 5234215-X (Version None)
Quarter: 2007Q1

REPORT INFORMATION
  Report Type: 
  Country: None (occurrence: None)
  Receive Date: 20070207
  Receipt Date: 20070201
  Transmission Date: 20070707
  Serious: Yes (Hospitalization)
  Sender: FDA-Public Use
  Company Number: 230460K07USA

PATIENT
  Age: 48 Year
  Sex: Female
  Weight: 77.1115 kg

DRUGS (10)
  1. REBIF [Suspect]
     Indication: MULTIPLE SCLEROSIS
     Dosage: 44 MCG, 3 IN 1 WEEKS, SUBCUTANEOUS
     Route: 058
     Dates: start: 20040606
  2. LIPITOR [Concomitant]
  3. DILTIAZEM [Concomitant]
  4. LISINOPRIL/HYDROCHLOROTHIAZIDE (PRINZIDE /00977901/) [Concomitant]
  5. PROTONIX [Concomitant]
  6. AMBIEN [Concomitant]
  7. CYMBALTA [Concomitant]
  8. BONIVA (IBANDRONATE SODIUM) [Concomitant]
  9. GABAPENTIN [Concomitant]
  10. PREMARIN [Concomitant]

REACTIONS (8)
  - BACK PAIN [None]
  - BREAST CYST [None]
  - DYSPNOEA [None]
  - HEART RATE IRREGULAR [None]
  - HYPERHIDROSIS [None]
  - HYPOTHYROIDISM [None]
  - PALPITATIONS [None]
  - VENTRICULAR EXTRASYSTOLES [None]
